FAERS Safety Report 15565087 (Version 1)
Quarter: 2018Q4

REPORT INFORMATION
  Report Type: Spontaneous
  Country: FI (occurrence: FI)
  Receive Date: 20181030
  Receipt Date: 20181030
  Transmission Date: 20190205
  Serious: Yes (Death, Hospitalization)
  Sender: FDA-Public Use
  Company Number: FI-ROCHE-2206553

PATIENT
  Sex: Male

DRUGS (1)
  1. RITUXIMAB. [Suspect]
     Active Substance: RITUXIMAB
     Indication: LYMPHOMA
     Route: 042
     Dates: start: 2018

REACTIONS (2)
  - Bone marrow failure [Fatal]
  - Pemphigus [Fatal]

NARRATIVE: CASE EVENT DATE: 2018
